FAERS Safety Report 8890233 (Version 1)
Quarter: 2012Q4

REPORT INFORMATION
  Report Type: 
  Country: CA (occurrence: CA)
  Receive Date: 20121106
  Receipt Date: 20121106
  Transmission Date: 20130627
  Serious: Yes (Hospitalization, Other)
  Sender: FDA-Public Use
  Company Number: PHHO2005CA07980

PATIENT
  Sex: Male

DRUGS (9)
  1. SANDOSTATIN LAR (PATIENT BASIS) [Suspect]
     Indication: HEPATIC NEOPLASM MALIGNANT
     Dosage: 20 mg, every 4 weeks
     Dates: start: 20041103
  2. CARDIAZEM [Concomitant]
  3. ISORDIL [Concomitant]
  4. NITRO [Concomitant]
     Route: 060
  5. NOVASEN [Concomitant]
  6. SYNTHROID [Concomitant]
  7. PROVOCHOLINE [Concomitant]
  8. SALBUTAMOL [Concomitant]
  9. PRAVACHOL [Concomitant]

REACTIONS (42)
  - Condition aggravated [Unknown]
  - Oedema peripheral [Recovering/Resolving]
  - Oedema genital [Recovering/Resolving]
  - Erythema [Unknown]
  - Blood pressure decreased [Unknown]
  - Gait disturbance [Unknown]
  - Bronchitis [Unknown]
  - Lung disorder [Unknown]
  - Blood glucose increased [Unknown]
  - Contusion [Unknown]
  - Decreased appetite [Not Recovered/Not Resolved]
  - Weight decreased [Unknown]
  - Fatigue [Not Recovered/Not Resolved]
  - Fall [Unknown]
  - Dizziness [Unknown]
  - Back pain [Unknown]
  - Epigastric discomfort [Unknown]
  - Skin irritation [Unknown]
  - Ear pain [Unknown]
  - Sensation of heaviness [Unknown]
  - Pain [Unknown]
  - Neck pain [Unknown]
  - Dry skin [Unknown]
  - Increased upper airway secretion [Unknown]
  - Feeling cold [Unknown]
  - Influenza [Unknown]
  - Scleral discolouration [Unknown]
  - Visual acuity reduced [Unknown]
  - Peripheral coldness [Unknown]
  - Abdominal mass [Unknown]
  - Hepatic pain [Unknown]
  - Local swelling [Unknown]
  - Neck mass [Unknown]
  - Abdominal distension [Unknown]
  - Diarrhoea [Unknown]
  - Heart rate decreased [Unknown]
  - Nausea [Unknown]
  - Dyspnoea [Unknown]
  - Constipation [Unknown]
  - Hyperglycaemia [Unknown]
  - Dyspepsia [Unknown]
  - Oedema [Unknown]
